FAERS Safety Report 9674654 (Version 1)
Quarter: 2013Q4

REPORT INFORMATION
  Report Type: Spontaneous
  Country: US (occurrence: None)
  Receive Date: 20131106
  Receipt Date: 20131106
  Transmission Date: 20140711
  Serious: Yes (Other)
  Sender: FDA-Public Use
  Company Number: None

PATIENT
  Age: 61 Year
  Sex: Female
  Weight: 78.47 kg

DRUGS (1)
  1. BOTOX [Suspect]
     Indication: SKIN COSMETIC PROCEDURE
     Dates: start: 20131016

REACTIONS (8)
  - Dyspnoea [None]
  - Anxiety [None]
  - Vomiting [None]
  - Hypertension [None]
  - Oropharyngeal pain [None]
  - Palpitations [None]
  - Dysphonia [None]
  - Insomnia [None]
